FAERS Safety Report 19235218 (Version 3)
Quarter: 2021Q2

REPORT INFORMATION
  Report Type: Spontaneous
  Country: PK (occurrence: PK)
  Receive Date: 20210509
  Receipt Date: 20210624
  Transmission Date: 20210717
  Serious: Yes (Other)
  Sender: FDA-Public Use
  Company Number: PK-AMGEN-PAKSP2021070260

PATIENT
  Age: 32 Year
  Sex: Female

DRUGS (5)
  1. SALAZODINE [Concomitant]
     Dosage: 2 G, DAILY
  2. HCQ [Concomitant]
     Active Substance: HYDROXYCHLOROQUINE SULFATE
     Dosage: 200 MG, DAILY
  3. ENBREL [Suspect]
     Active Substance: ETANERCEPT
     Indication: RHEUMATOID ARTHRITIS
     Dosage: 50 MG, WEEKLY
     Route: 058
     Dates: start: 202012
  4. LEFORA [Concomitant]
     Dosage: 10 MG, DAILY
  5. PRED [PREDNISONE] [Concomitant]
     Dosage: 5 MG, DAILY

REACTIONS (2)
  - Infection [Unknown]
  - Haematochezia [Unknown]
